FAERS Safety Report 9413194 (Version 3)
Quarter: 2013Q3

REPORT INFORMATION
  Report Type: Spontaneous
  Country: US (occurrence: US)
  Receive Date: 20130722
  Receipt Date: 20130802
  Transmission Date: 20140515
  Serious: No
  Sender: FDA-Public Use
  Company Number: US-PFIZER INC-2013210656

PATIENT
  Age: 60 Year
  Sex: Female
  Weight: 72.56 kg

DRUGS (1)
  1. ADVIL CONGESTION RELIEF [Suspect]
     Indication: SINUS DISORDER
     Dosage: 200 MG , ONCE
     Route: 048
     Dates: start: 20130707, end: 20130708

REACTIONS (2)
  - Palpitations [Recovered/Resolved]
  - Heart rate increased [Recovered/Resolved]
